FAERS Safety Report 18665438 (Version 1)
Quarter: 2020Q4

REPORT INFORMATION
  Report Type: Spontaneous
  Country: US (occurrence: US)
  Receive Date: 20201225
  Receipt Date: 20201225
  Transmission Date: 20210114
  Serious: Yes (Other)
  Sender: FDA-Public Use
  Company Number: US-GLAXOSMITHKLINE-US2020AMR252178

PATIENT
  Age: 54 Year
  Sex: Female

DRUGS (2)
  1. VENTOLIN HFA [Suspect]
     Active Substance: ALBUTEROL SULFATE
     Indication: PRODUCT USED FOR UNKNOWN INDICATION
     Dosage: UNK
     Dates: start: 2001
  2. BREO ELLIPTA [Suspect]
     Active Substance: FLUTICASONE FUROATE\VILANTEROL TRIFENATATE
     Indication: PRODUCT USED FOR UNKNOWN INDICATION
     Dosage: UNK (100/25 MCG)
     Dates: start: 2016

REACTIONS (10)
  - Diabetes mellitus [Unknown]
  - Stress [Unknown]
  - Asthenia [Unknown]
  - COVID-19 [Unknown]
  - General physical health deterioration [Unknown]
  - Fatigue [Unknown]
  - Decreased appetite [Unknown]
  - Myocardial infarction [Unknown]
  - Hypertension [Unknown]
  - Therapeutic response unexpected [Unknown]

NARRATIVE: CASE EVENT DATE: 20190910
